FAERS Safety Report 4394416-X (Version None)
Quarter: 2004Q3

REPORT INFORMATION
  Report Type: 
  Country: None (occurrence: None)
  Receive Date: 20040706
  Receipt Date: 20040603
  Transmission Date: 20050211
  Serious: Yes (Other)
  Sender: FDA-Public Use
  Company Number: 2004-00023

PATIENT
  Sex: Female
  Weight: 63 kg

DRUGS (4)
  1. VELCADE [Suspect]
     Indication: MULTIPLE MYELOMA
     Dosage: INTRAVENOUS
     Route: 042
     Dates: start: 20040101, end: 20040622
  2. DEXAMETHASONE [Concomitant]
  3. DIPHENHYDRAMINE HCL [Concomitant]
  4. FLORINEF [Concomitant]

REACTIONS (7)
  - BACK PAIN [None]
  - BLOOD IMMUNOGLOBULIN A DECREASED [None]
  - DERMATITIS EXFOLIATIVE [None]
  - DRUG INEFFECTIVE [None]
  - DRY SKIN [None]
  - FATIGUE [None]
  - INTERVERTEBRAL DISC PROTRUSION [None]
